FAERS Safety Report 22751745 (Version 3)
Quarter: 2023Q4

REPORT INFORMATION
  Report Type: Report from Study
  Country: CA (occurrence: CA)
  Receive Date: 20230726
  Receipt Date: 20231121
  Transmission Date: 20240110
  Serious: Yes (Other)
  Sender: FDA-Public Use
  Company Number: CA-TEVA-2023-CA-2851919

PATIENT
  Age: 44 Year
  Sex: Female

DRUGS (4)
  1. COPAXONE [Suspect]
     Active Substance: GLATIRAMER ACETATE
     Indication: Relapsing-remitting multiple sclerosis
     Route: 058
     Dates: start: 20230124, end: 2023
  2. VITAMIN D3 [Concomitant]
     Active Substance: CHOLECALCIFEROL
     Indication: Product used for unknown indication
     Route: 065
  3. OMEGA 3 [Concomitant]
     Active Substance: CAPSAICIN
     Indication: Product used for unknown indication
     Route: 065
  4. CYCLOBENZAPRINE [Concomitant]
     Active Substance: CYCLOBENZAPRINE
     Indication: Product used for unknown indication
     Route: 065

REACTIONS (20)
  - Cyanosis [Unknown]
  - Adverse drug reaction [Not Recovered/Not Resolved]
  - Skin discolouration [Unknown]
  - Injection site swelling [Unknown]
  - Chills [Unknown]
  - Pyrexia [Unknown]
  - Muscle tightness [Unknown]
  - Tremor [Unknown]
  - Gait disturbance [Unknown]
  - Influenza like illness [Unknown]
  - Feeling cold [Unknown]
  - Wrong technique in product usage process [Unknown]
  - Injection site pruritus [Recovering/Resolving]
  - Injection site pain [Recovering/Resolving]
  - Injection site bruising [Recovering/Resolving]
  - Cough [Recovering/Resolving]
  - Nasopharyngitis [Recovering/Resolving]
  - Muscle spasticity [Recovered/Resolved]
  - Injection site urticaria [Recovered/Resolved]
  - Immediate post-injection reaction [Unknown]

NARRATIVE: CASE EVENT DATE: 20230101
